FAERS Safety Report 13403088 (Version 1)
Quarter: 2017Q2

REPORT INFORMATION
  Report Type: Spontaneous
  Country: US (occurrence: US)
  Receive Date: 20170404
  Receipt Date: 20170404
  Transmission Date: 20170830
  Serious: No
  Sender: FDA-Public Use
  Company Number: US-ROCHE-1768186

PATIENT
  Sex: Female

DRUGS (6)
  1. AVASTIN [Suspect]
     Active Substance: BEVACIZUMAB
     Indication: LUNG CARCINOMA CELL TYPE UNSPECIFIED STAGE IV
     Dosage: ONCE EVERY 3 WEEKS
     Route: 042
  2. AVASTIN [Suspect]
     Active Substance: BEVACIZUMAB
     Indication: COLON CANCER
  3. PEPCID [Concomitant]
     Active Substance: FAMOTIDINE
  4. VALIUM [Concomitant]
     Active Substance: DIAZEPAM
     Indication: ANXIETY
     Dosage: TAKES 1/2 TABLET ONCE A DAY
     Route: 065
  5. KLONOPIN [Concomitant]
     Active Substance: CLONAZEPAM
     Indication: PANIC ATTACK
  6. KLONOPIN [Concomitant]
     Active Substance: CLONAZEPAM
     Indication: ANXIETY
     Dosage: 1/2 OF 0.5 MG IN THE MORNING AND AT BEDTIME
     Route: 065

REACTIONS (2)
  - Panic attack [Recovered/Resolved with Sequelae]
  - Hypertension [Unknown]

NARRATIVE: CASE EVENT DATE: 20160520
